FAERS Safety Report 6602730-X (Version None)
Quarter: 2010Q1

REPORT INFORMATION
  Report Type: 
  Country: None (occurrence: None)
  Receive Date: 20100218
  Receipt Date: 20100205
  Transmission Date: 20100710
  Serious: Yes (Congenital Anomaly)
  Sender: FDA-Public Use
  Company Number: 006361

PATIENT

DRUGS (2)
  1. KEPPRA [Suspect]
     Indication: GENERALISED NON-CONVULSIVE EPILEPSY
     Dosage: (500 MG BID TRANSPLACENTAL)
     Route: 064
  2. VALPROATE SODIUM [Suspect]
     Indication: GENERALISED NON-CONVULSIVE EPILEPSY
     Dosage: (2500 MG TRANSPLACENTAL)
     Route: 064

REACTIONS (2)
  - MATERNAL DRUGS AFFECTING FOETUS [None]
  - TALIPES [None]
